FAERS Safety Report 9880971 (Version 1)
Quarter: 2014Q1

REPORT INFORMATION
  Report Type: Spontaneous
  Country: FR (occurrence: FR)
  Receive Date: 20140207
  Receipt Date: 20140207
  Transmission Date: 20141002
  Serious: Yes (Hospitalization)
  Sender: FDA-Public Use
  Company Number: FR-NOVOPROD-399444

PATIENT
  Age: 76 Year
  Sex: Female

DRUGS (6)
  1. INSULATARD [Suspect]
     Indication: TYPE 1 DIABETES MELLITUS
     Dosage: UNK
     Route: 065
  2. CARDENSIEL [Suspect]
     Indication: HYPERTENSION
     Dosage: 10 MG, QD
     Route: 048
  3. METFORMIN [Suspect]
     Indication: DIABETES MELLITUS
     Dosage: 2000 MG, QD
     Route: 048
  4. OLMETEC [Concomitant]
     Indication: HYPERTENSION
     Dosage: 20 MG, BID
     Route: 065
  5. VASTAREL [Concomitant]
     Dosage: 35 MG, BID
     Route: 048
  6. METHOTREXATE [Concomitant]
     Dosage: UNK (2.5MG FOUR TABLETS ONCE PER WEEK)
     Route: 048

REACTIONS (2)
  - Fall [Recovered/Resolved]
  - Hypoglycaemia [Recovered/Resolved]
